FAERS Safety Report 24894148 (Version 1)
Quarter: 2025Q1

REPORT INFORMATION
  Report Type: Report from Study
  Country: US (occurrence: US)
  Receive Date: 20250128
  Receipt Date: 20250128
  Transmission Date: 20250409
  Serious: Yes (Other)
  Sender: SUNOVION
  Company Number: US-SMPA-2025SPA000613

PATIENT

DRUGS (13)
  1. ORGOVYX [Suspect]
     Active Substance: RELUGOLIX
     Indication: Prostate cancer
     Dosage: 360 MG, SINGLE
     Route: 048
  2. ORGOVYX [Suspect]
     Active Substance: RELUGOLIX
     Dosage: 120 MG, QD
     Route: 048
     Dates: start: 202310
  3. ATORVASTATIN [Concomitant]
     Active Substance: ATORVASTATIN
     Route: 065
  4. CEQUA [Concomitant]
     Active Substance: CYCLOSPORINE
     Route: 065
  5. ASPIRIN [Concomitant]
     Active Substance: ASPIRIN
     Route: 065
  6. FISH OIL [Concomitant]
     Active Substance: FISH OIL
     Route: 065
  7. IBUPROFEN [Concomitant]
     Active Substance: IBUPROFEN
     Route: 065
  8. LOSARTAN [Concomitant]
     Active Substance: LOSARTAN
     Route: 065
  9. MAGNESIUM [Concomitant]
     Active Substance: MAGNESIUM
     Route: 065
  10. VITAMIN C [Concomitant]
     Active Substance: ASCORBIC ACID
     Route: 065
  11. VITAMIN D [Concomitant]
     Active Substance: VITAMIN D NOS
     Route: 065
  12. ZOLPIDEM [Concomitant]
     Active Substance: ZOLPIDEM TARTRATE
     Route: 065
  13. MINERALS [Concomitant]
     Active Substance: MINERALS
     Route: 065

REACTIONS (9)
  - Peripheral arterial occlusive disease [Unknown]
  - Keratitis [Unknown]
  - Lymphoedema [Unknown]
  - White blood cell count decreased [Unknown]
  - Pollakiuria [Unknown]
  - Fatigue [Unknown]
  - Hot flush [Unknown]
  - Flushing [Unknown]
  - Insomnia [Unknown]

NARRATIVE: CASE EVENT DATE: 20240701
